FAERS Safety Report 10191550 (Version 1)
Quarter: 2014Q2

REPORT INFORMATION
  Report Type: Spontaneous
  Country: US (occurrence: US)
  Receive Date: 20140523
  Receipt Date: 20140523
  Transmission Date: 20141212
  Serious: Yes (Other)
  Sender: FDA-Public Use
  Company Number: US-PFIZER INC-2014137919

PATIENT
  Age: 54 Year
  Sex: Female

DRUGS (13)
  1. XELJANZ [Suspect]
     Dosage: 5 MG, 2X/DAY
     Route: 048
  2. METHOTREXATE [Concomitant]
     Dosage: 10 MG, UNK
  3. PLAQUENIL [Concomitant]
     Dosage: 200 MG, UNK
  4. CELEBREX [Concomitant]
     Dosage: 200 MG, UNK
  5. ULTRAM [Concomitant]
     Dosage: 50 MG, UNK
  6. BENADRYL [Concomitant]
     Dosage: 50 MG/ML, UNK
  7. SYNTHROID [Concomitant]
     Dosage: 25 UG, UNK
  8. ALLEGRA [Concomitant]
     Dosage: 180 MG, UNK
  9. OS-CAL D [Concomitant]
     Dosage: UNK
  10. FOLIC ACID [Concomitant]
     Dosage: 1 MG, UNK
  11. FLONASE SPR [Concomitant]
     Dosage: 0.05 %, UNK
  12. PRILOSEC [Concomitant]
     Dosage: 20 MG, UNK
  13. FLEXERIL [Concomitant]

REACTIONS (1)
  - Nephrolithiasis [Unknown]
